FAERS Safety Report 18508963 (Version 1)
Quarter: 2020Q4

REPORT INFORMATION
  Report Type: Spontaneous
  Country: US (occurrence: US)
  Receive Date: 20201117
  Receipt Date: 20201117
  Transmission Date: 20210114
  Serious: Yes (Other)
  Sender: FDA-Public Use
  Company Number: US-SUN PHARMACEUTICAL INDUSTRIES LTD-2020RR-267752

PATIENT
  Age: 35 Year
  Sex: Male

DRUGS (6)
  1. TEMOZOLOMIDE. [Suspect]
     Active Substance: TEMOZOLOMIDE
     Indication: DIFFUSE LARGE B-CELL LYMPHOMA
  2. TEMOZOLOMIDE. [Suspect]
     Active Substance: TEMOZOLOMIDE
     Indication: EPSTEIN-BARR VIRUS INFECTION
     Dosage: 150 MILLIGRAM/SQ. METER, DAILY, DAY 7
     Route: 065
  3. RITUXIMAB. [Suspect]
     Active Substance: RITUXIMAB
     Indication: DIFFUSE LARGE B-CELL LYMPHOMA
  4. METHOTREXATE. [Suspect]
     Active Substance: METHOTREXATE
     Indication: EPSTEIN-BARR VIRUS INFECTION
  5. RITUXIMAB. [Suspect]
     Active Substance: RITUXIMAB
     Indication: EPSTEIN-BARR VIRUS INFECTION
     Dosage: 375 MILLIGRAM/SQ. METER, DAYS 2, 10, 17 AND 24
     Route: 065
  6. METHOTREXATE. [Suspect]
     Active Substance: METHOTREXATE
     Indication: DIFFUSE LARGE B-CELL LYMPHOMA
     Dosage: 8 MILLIGRAM/SQ. METER, DAYS 1 AND DAY 15
     Route: 065

REACTIONS (1)
  - Neoplasm progression [Unknown]
